FAERS Safety Report 17322606 (Version 1)
Quarter: 2020Q1

REPORT INFORMATION
  Report Type: Spontaneous
  Country: US (occurrence: US)
  Receive Date: 20200124
  Receipt Date: 20200124
  Transmission Date: 20200409
  Serious: Yes (Other)
  Sender: FDA-Public Use
  Company Number: None

PATIENT
  Sex: Female

DRUGS (2)
  1. ARMOUR THYROID (GENERIC) [Suspect]
     Active Substance: THYROID, PORCINE
  2. LEVOTHYROXINE. [Suspect]
     Active Substance: LEVOTHYROXINE

REACTIONS (2)
  - Drug intolerance [None]
  - Blood thyroid stimulating hormone abnormal [None]
